FAERS Safety Report 9956355 (Version 2)
Quarter: 2014Q2

REPORT INFORMATION
  Report Type: Report from Study
  Country: CO (occurrence: CO)
  Receive Date: 20140304
  Receipt Date: 20140409
  Transmission Date: 20141212
  Serious: Yes (Death)
  Sender: FDA-Public Use
  Company Number: CO-ROCHE-1359403

PATIENT
  Sex: Male

DRUGS (1)
  1. BEVACIZUMAB [Suspect]
     Indication: COLON CANCER
     Route: 042
     Dates: start: 20130312

REACTIONS (1)
  - Disease progression [Fatal]
